FAERS Safety Report 23133399 (Version 1)
Quarter: 2023Q4

REPORT INFORMATION
  Report Type: Report from Study
  Country: US (occurrence: US)
  Receive Date: 20231101
  Receipt Date: 20231101
  Transmission Date: 20240110
  Serious: Yes (Hospitalization)
  Sender: FDA-Public Use
  Company Number: US-Accord-387729

PATIENT
  Sex: Female
  Weight: 66.3 kg

DRUGS (1)
  1. CLOZAPINE [Suspect]
     Active Substance: CLOZAPINE
     Indication: Product used for unknown indication
     Dosage: 50 MG BY MOUTH TWICE DAILY (TOTAL DAILY DOSE  100MG)
     Dates: end: 20231014

REACTIONS (2)
  - Pneumonia [Unknown]
  - Pulmonary mass [Unknown]
